FAERS Safety Report 10027114 (Version 2)
Quarter: 2014Q1

REPORT INFORMATION
  Report Type: Spontaneous
  Country: US (occurrence: US)
  Receive Date: 20140321
  Receipt Date: 20140321
  Transmission Date: 20141002
  Serious: No
  Sender: FDA-Public Use
  Company Number: US-MYLANLABS-2013S1010808

PATIENT
  Sex: Female
  Weight: 54.89 kg

DRUGS (2)
  1. ESTRADIOL TRANSDERMAL SYSTEM, USP [Suspect]
     Indication: HORMONE REPLACEMENT THERAPY
     Dosage: CHANGED EVERY 3 DAYS
     Route: 062
     Dates: start: 20130315, end: 20130401
  2. VITAMIN D [Concomitant]

REACTIONS (2)
  - Saliva altered [Recovered/Resolved]
  - Sinus congestion [Recovering/Resolving]
